FAERS Safety Report 17436522 (Version 1)
Quarter: 2020Q1

REPORT INFORMATION
  Report Type: Spontaneous
  Country: US (occurrence: US)
  Receive Date: 20200219
  Receipt Date: 20200219
  Transmission Date: 20200409
  Serious: Yes (Other)
  Sender: FDA-Public Use
  Company Number: US-ASTRAZENECA-2018SE27809

PATIENT
  Age: 18338 Day
  Sex: Male
  Weight: 63.5 kg

DRUGS (80)
  1. PRILOSEC [Suspect]
     Active Substance: OMEPRAZOLE MAGNESIUM
     Indication: GASTROOESOPHAGEAL REFLUX DISEASE
     Route: 048
     Dates: start: 201201, end: 201608
  2. PRILOSEC OTC [Suspect]
     Active Substance: OMEPRAZOLE MAGNESIUM
     Indication: GASTROOESOPHAGEAL REFLUX DISEASE
     Route: 048
     Dates: start: 201001, end: 201501
  3. COQ10 [Concomitant]
     Active Substance: UBIDECARENONE
     Indication: CARDIAC DISORDER
     Dates: start: 2012
  4. TAGAMET [Concomitant]
     Active Substance: CIMETIDINE
     Dates: start: 2010
  5. ZANTAC [Concomitant]
     Active Substance: RANITIDINE HYDROCHLORIDE
     Dates: start: 2012
  6. TENORMIN [Concomitant]
     Active Substance: ATENOLOL
  7. FENTANYL. [Concomitant]
     Active Substance: FENTANYL
  8. DOCUSATE SODIUM. [Concomitant]
     Active Substance: DOCUSATE SODIUM
  9. AVASTIN [Concomitant]
     Active Substance: BEVACIZUMAB
  10. CIPROFLOXACIN. [Concomitant]
     Active Substance: CIPROFLOXACIN
  11. DIGOXIN. [Concomitant]
     Active Substance: DIGOXIN
  12. ALPRAZOLAM. [Concomitant]
     Active Substance: ALPRAZOLAM
  13. PREGABALIN. [Concomitant]
     Active Substance: PREGABALIN
  14. GLUCOSAMINE [Concomitant]
     Active Substance: GLUCOSAMINE
     Indication: CARDIAC DISORDER
     Dates: start: 2012
  15. CIMETIDINE [Concomitant]
     Active Substance: CIMETIDINE
     Dates: start: 2011
  16. MILK OF MAGNESIA [Concomitant]
     Active Substance: MAGNESIUM HYDROXIDE
     Dates: start: 2008
  17. NORVASC [Concomitant]
     Active Substance: AMLODIPINE BESYLATE
  18. HUMULIN NOS [Concomitant]
     Active Substance: INSULIN HUMAN
  19. METFORMIN [Concomitant]
     Active Substance: METFORMIN HYDROCHLORIDE
  20. ZOCOR [Concomitant]
     Active Substance: SIMVASTATIN
  21. ONDANSETRON [Concomitant]
     Active Substance: ONDANSETRON
  22. LABETALOL [Concomitant]
     Active Substance: LABETALOL\LABETALOL HYDROCHLORIDE
  23. SODIUM POLYSTYRENE SULFONATE. [Concomitant]
     Active Substance: SODIUM POLYSTYRENE SULFONATE
  24. BECLOMETHASONE [Concomitant]
     Active Substance: BECLOMETHASONE
  25. ALTACE [Concomitant]
     Active Substance: RAMIPRIL
  26. NYSTATIN. [Concomitant]
     Active Substance: NYSTATIN
  27. AXID [Concomitant]
     Active Substance: NIZATIDINE
     Dates: start: 2011
  28. TERAZOSIN [Concomitant]
     Active Substance: TERAZOSIN HYDROCHLORIDE
  29. CALCITRIOL. [Concomitant]
     Active Substance: CALCITRIOL
  30. NEXIUM [Suspect]
     Active Substance: ESOMEPRAZOLE MAGNESIUM
     Indication: GASTROOESOPHAGEAL REFLUX DISEASE
     Dosage: GENERIC
     Route: 065
  31. ALKA-SELTZER [Concomitant]
     Active Substance: ANHYDROUS CITRIC ACID\ASPIRIN\SODIUM BICARBONATE
     Dates: start: 2008
  32. ROLAIDS [Concomitant]
     Active Substance: CALCIUM CARBONATE\MAGNESIUM HYDROXIDE
     Dates: start: 2008
  33. VITAMIN D2 [Concomitant]
     Active Substance: ERGOCALCIFEROL
  34. FUROSEMIDE. [Concomitant]
     Active Substance: FUROSEMIDE
  35. ECOTRIN [Concomitant]
     Active Substance: ASPIRIN
  36. HYDROMORPHONE [Concomitant]
     Active Substance: HYDROMORPHONE
  37. DIPHENHYDRAMINE. [Concomitant]
     Active Substance: DIPHENHYDRAMINE
  38. POTASSIUM CHLORIDE. [Concomitant]
     Active Substance: POTASSIUM CHLORIDE
  39. APRESOLINE HYDROCHLORIDE [Concomitant]
     Active Substance: HYDRALAZINE HYDROCHLORIDE
  40. CODEINE [Concomitant]
     Active Substance: CODEINE
  41. ACETAMINOPHEN. [Concomitant]
     Active Substance: ACETAMINOPHEN
  42. SOLIFENACIN [Concomitant]
     Active Substance: SOLIFENACIN
  43. CEFAZOLIN [Concomitant]
     Active Substance: CEFAZOLIN
  44. HYDRALAZINE [Concomitant]
     Active Substance: HYDRALAZINE HYDROCHLORIDE
  45. NEXIUM 24HR [Suspect]
     Active Substance: ESOMEPRAZOLE MAGNESIUM
     Indication: GASTROOESOPHAGEAL REFLUX DISEASE
     Route: 048
     Dates: start: 201001, end: 201501
  46. PRILOSEC [Suspect]
     Active Substance: OMEPRAZOLE MAGNESIUM
     Indication: GASTROOESOPHAGEAL REFLUX DISEASE
     Dosage: GENERIC
     Route: 065
     Dates: start: 201201, end: 201608
  47. LEVOTHYROXINE. [Concomitant]
     Active Substance: LEVOTHYROXINE
  48. ATENOLOL. [Concomitant]
     Active Substance: ATENOLOL
  49. SUCROSE [Concomitant]
     Active Substance: SUCROSE
  50. RIVAROXABAN [Concomitant]
     Active Substance: RIVAROXABAN
  51. CEFTAZIDIME. [Concomitant]
     Active Substance: CEFTAZIDIME
  52. MUPIROCIN. [Concomitant]
     Active Substance: MUPIROCIN
  53. PREVACID 24 HR [Suspect]
     Active Substance: LANSOPRAZOLE
     Indication: GASTROOESOPHAGEAL REFLUX DISEASE
     Route: 065
     Dates: start: 2012, end: 2014
  54. KRILL OIL [Concomitant]
     Active Substance: DIETARY SUPPLEMENT\KRILL OIL
     Indication: CARDIAC DISORDER
     Dates: start: 2012
  55. PEPCID [Concomitant]
     Active Substance: FAMOTIDINE
     Dates: start: 2010
  56. FAMOTIDINE. [Concomitant]
     Active Substance: FAMOTIDINE
     Dates: start: 2013
  57. TUMS [Concomitant]
     Active Substance: CALCIUM CARBONATE
     Dates: start: 2008
  58. GLUCOTROL [Concomitant]
     Active Substance: GLIPIZIDE
  59. ULTRAM [Concomitant]
     Active Substance: TRAMADOL HYDROCHLORIDE
  60. MEPERIDINE [Concomitant]
     Active Substance: MEPERIDINE
  61. KAYEXALATE [Concomitant]
     Active Substance: SODIUM POLYSTYRENE SULFONATE
  62. INSULIN [Concomitant]
     Active Substance: INSULIN NOS
  63. GUAIFENESIN. [Concomitant]
     Active Substance: GUAIFENESIN
  64. ESZOPICLONE. [Concomitant]
     Active Substance: ESZOPICLONE
  65. NEXIUM [Suspect]
     Active Substance: ESOMEPRAZOLE MAGNESIUM
     Indication: GASTROOESOPHAGEAL REFLUX DISEASE
     Route: 048
     Dates: start: 2011, end: 2013
  66. MAALOX ANTACID [Concomitant]
     Active Substance: ALUMINUM HYDROXIDE\DIMETHICONE\MAGNESIUM HYDROXIDE
     Dates: start: 2008
  67. GAVISCON [Concomitant]
     Active Substance: ALUMINUM HYDROXIDE\MAGNESIUM CARBONATE
     Dates: start: 2008
  68. AMLODIPINE [Concomitant]
     Active Substance: AMLODIPINE BESYLATE
  69. METOCLOPRAMIDE. [Concomitant]
     Active Substance: METOCLOPRAMIDE
  70. VITAMIN C [Concomitant]
     Active Substance: ASCORBIC ACID
     Indication: MINERAL SUPPLEMENTATION
     Dates: start: 2012
  71. MYLANTA [Concomitant]
     Active Substance: ALUMINUM HYDROXIDE\DIMETHICONE\MAGNESIUM HYDROXIDE
     Dates: start: 2008
  72. PENICILLIN [Concomitant]
     Active Substance: PENICILLIN
     Dates: start: 20140809
  73. IMDUR [Concomitant]
     Active Substance: ISOSORBIDE MONONITRATE
  74. LASIX [Concomitant]
     Active Substance: FUROSEMIDE
  75. COLLAGENASE SANTYL [Concomitant]
     Active Substance: COLLAGENASE CLOSTRIDIUM HISTOLYTICUM
  76. BECLOMETHASONE DIPROPIONATE [Concomitant]
     Active Substance: BECLOMETHASONE DIPROPIONATE
  77. EPOETIN [Concomitant]
     Active Substance: ERYTHROPOIETIN
  78. HYTRIN [Concomitant]
     Active Substance: TERAZOSIN HYDROCHLORIDE
  79. DEXAMETHASONE SODIUM PHOSPHATE. [Concomitant]
     Active Substance: DEXAMETHASONE SODIUM PHOSPHATE
  80. DONEPEZIL. [Concomitant]
     Active Substance: DONEPEZIL

REACTIONS (7)
  - Nephrogenic anaemia [Unknown]
  - Hyperparathyroidism secondary [Unknown]
  - Acute kidney injury [Not Recovered/Not Resolved]
  - Chronic kidney disease [Not Recovered/Not Resolved]
  - Renal failure [Unknown]
  - End stage renal disease [Not Recovered/Not Resolved]
  - Abdominal pain upper [Unknown]

NARRATIVE: CASE EVENT DATE: 20131016
